FAERS Safety Report 8204048-0 (Version None)
Quarter: 2012Q1

REPORT INFORMATION
  Report Type: 
  Country: None (occurrence: None)
  Receive Date: 20120313
  Receipt Date: 20120309
  Transmission Date: 20120608
  Serious: Yes (Other)
  Sender: FDA-Public Use
  Company Number: US-PFIZER INC-2012063673

PATIENT
  Sex: Male
  Weight: 77.098 kg

DRUGS (1)
  1. IBUPROFEN (ADVIL) [Suspect]
     Indication: PAIN
     Dosage: 200 MG, 4X/DAY
     Route: 048

REACTIONS (4)
  - MALAISE [None]
  - DRUG INEFFECTIVE [None]
  - HAEMORRHAGE [None]
  - VOMITING [None]
